FAERS Safety Report 8811611 (Version 7)
Quarter: 2017Q2

REPORT INFORMATION
  Report Type: Report from Study
  Country: CA (occurrence: CA)
  Receive Date: 20120927
  Receipt Date: 20170505
  Transmission Date: 20170830
  Serious: Yes (Other)
  Sender: FDA-Public Use
  Company Number: PHHY2012CA078127

PATIENT
  Age: 56 Year
  Sex: Female

DRUGS (4)
  1. SOMAVERT [Concomitant]
     Active Substance: PEGVISOMANT
     Indication: PRODUCT USED FOR UNKNOWN INDICATION
     Dosage: UNK UNK, QMO
     Route: 058
  2. SANDOSTATIN LAR DEPOT [Suspect]
     Active Substance: OCTREOTIDE ACETATE
     Dosage: 20 MG, QMO (EVERY 4 WEEKS)
     Route: 030
  3. SANDOSTATIN LAR DEPOT [Suspect]
     Active Substance: OCTREOTIDE ACETATE
     Indication: ACROMEGALY
     Dosage: 20 MG, QMO (EVERY 4 WEEKS)
     Route: 030
     Dates: start: 20041020
  4. SANDOSTATIN LAR DEPOT [Suspect]
     Active Substance: OCTREOTIDE ACETATE
     Dosage: 20 MG, EVERY 6 WEEKS
     Route: 030
     Dates: start: 20140304

REACTIONS (16)
  - Oropharyngeal pain [Unknown]
  - Ear pain [Unknown]
  - Nausea [Unknown]
  - Blood glucose decreased [Unknown]
  - Hypophagia [Unknown]
  - Influenza like illness [Unknown]
  - Memory impairment [Unknown]
  - Conjunctivitis [Recovered/Resolved]
  - Product use issue [Unknown]
  - Disturbance in attention [Unknown]
  - Blood pressure systolic increased [Unknown]
  - Malaise [Unknown]
  - Chest pain [Unknown]
  - Blood pressure increased [Unknown]
  - Musculoskeletal chest pain [Unknown]
  - Viral infection [Unknown]

NARRATIVE: CASE EVENT DATE: 201603
